FAERS Safety Report 11373577 (Version 1)
Quarter: 2015Q3

REPORT INFORMATION
  Report Type: Spontaneous
  Country: SE (occurrence: None)
  Receive Date: 20150811
  Receipt Date: 20150811
  Transmission Date: 20151125
  Serious: No
  Sender: FDA-Public Use
  Company Number: 1507SWE014185

PATIENT
  Age: 86 Year
  Sex: Male

DRUGS (2)
  1. BICALUTAMIDE (BICALUTAMIDE) 80 MG [Concomitant]
     Active Substance: BICALUTAMIDE
  2. CEDAX [Suspect]
     Active Substance: CEFTIBUTEN DIHYDRATE
     Indication: URINARY TRACT INFECTION
     Dosage: STRENGTH: 400MG;  1 CAPSULE HARD ONCE A DAY, ORAL
     Route: 048
     Dates: start: 20150728

REACTIONS (1)
  - Inappropriate schedule of drug administration [None]

NARRATIVE: CASE EVENT DATE: 20150728
